FAERS Safety Report 7163635-1 (Version None)
Quarter: 2010Q4

REPORT INFORMATION
  Report Type: 
  Country: None (occurrence: None)
  Receive Date: 20101215
  Receipt Date: 20100520
  Transmission Date: 20110411
  Serious: Yes (Hospitalization, Other)
  Sender: FDA-Public Use
  Company Number: US-PFIZER INC-2006127165

PATIENT
  Sex: Male

DRUGS (5)
  1. LYRICA [Suspect]
     Dosage: UNK
     Dates: end: 20060801
  2. ZICONOTIDE [Interacting]
     Indication: POST LAMINECTOMY SYNDROME
     Dosage: PER DAY
     Route: 037
  3. ZANAFLEX [Interacting]
     Route: 048
     Dates: start: 20060721, end: 20060805
  4. CYMBALTA [Concomitant]
  5. FENTANYL [Concomitant]
     Route: 023

REACTIONS (9)
  - ACUTE PSYCHOSIS [None]
  - BURNING SENSATION [None]
  - CONFUSIONAL STATE [None]
  - DIZZINESS [None]
  - DRUG INTERACTION [None]
  - HALLUCINATION, AUDITORY [None]
  - HEADACHE [None]
  - MEDICAL DEVICE COMPLICATION [None]
  - THINKING ABNORMAL [None]
